FAERS Safety Report 7469575-2 (Version None)
Quarter: 2011Q2

REPORT INFORMATION
  Report Type: 
  Country: None (occurrence: None)
  Receive Date: 20110510
  Receipt Date: 20110504
  Transmission Date: 20111010
  Serious: Yes (Hospitalization)
  Sender: FDA-Public Use
  Company Number: US-SANOFI-AVENTIS-2011SA028023

PATIENT
  Age: 73 Year
  Sex: Female
  Weight: 101 kg

DRUGS (7)
  1. ZETIA [Concomitant]
  2. METOPROLOL SUCCINATE [Concomitant]
  3. MENEST /OLD FORM/ [Concomitant]
  4. COUMADIN [Concomitant]
     Dosage: 3MG, 3 TABLETS PER DAY FOR 6DAYS AND 3MG, 2 TABLETS 6MG ON THE 7TH DAY
  5. METFORMIN HCL [Concomitant]
  6. MULTAQ [Suspect]
     Indication: ATRIAL FIBRILLATION
     Route: 048
     Dates: start: 20101101, end: 20110201
  7. SYNTHROID [Concomitant]
     Indication: HYPOTHYROIDISM

REACTIONS (3)
  - VOMITING [None]
  - NAUSEA [None]
  - LOSS OF CONSCIOUSNESS [None]
